FAERS Safety Report 7530147-2 (Version None)
Quarter: 2011Q2

REPORT INFORMATION
  Report Type: 
  Country: None (occurrence: None)
  Receive Date: 20110607
  Receipt Date: 20110531
  Transmission Date: 20111010
  Serious: Yes (Other)
  Sender: FDA-Public Use
  Company Number: US-US-EMD SERONO, INC.-7062729

PATIENT
  Sex: Female

DRUGS (2)
  1. REBIF [Suspect]
     Indication: PRODUCT USED FOR UNKNOWN INDICATION
     Route: 058
     Dates: start: 20100915
  2. IBUPROFEN [Concomitant]
     Indication: PREMEDICATION

REACTIONS (3)
  - VOMITING [None]
  - ATRIAL FIBRILLATION [None]
  - UTERINE PROLAPSE [None]
